FAERS Safety Report 5590885-8 (Version None)
Quarter: 2007Q4

REPORT INFORMATION
  Report Type: 
  Country: None (occurrence: None)
  Receive Date: 20071213
  Receipt Date: 20070718
  Transmission Date: 20080405
  Serious: Yes (Other)
  Sender: FDA-Public Use
  Company Number: 39150

PATIENT
  Age: 70 Year
  Sex: Female

DRUGS (3)
  1. ETOMIDATE [Suspect]
     Indication: ELECTROCONVULSIVE THERAPY
     Dosage: 30MG
     Dates: start: 20070718
  2. GLYCOPYRROLATE [Concomitant]
  3. SUCCINYLCHOLINE CHLORIDE [Concomitant]

REACTIONS (1)
  - DRUG INEFFECTIVE [None]
